FAERS Safety Report 15684659 (Version 7)
Quarter: 2022Q4

REPORT INFORMATION
  Report Type: Spontaneous
  Country: CA (occurrence: CA)
  Receive Date: 20181204
  Receipt Date: 20221102
  Transmission Date: 20230113
  Serious: Yes (Hospitalization, Other)
  Sender: FDA-Public Use
  Company Number: CA-TEVA-2018-CA-981625

PATIENT
  Age: 70 Year
  Sex: Female

DRUGS (35)
  1. ENTACAPONE [Suspect]
     Active Substance: ENTACAPONE
     Indication: Parkinson^s disease
     Dosage: 1000 MILLIGRAM DAILY;
     Route: 065
  2. ENTACAPONE [Suspect]
     Active Substance: ENTACAPONE
     Indication: Psychotic disorder
     Dosage: 1000 MILLIGRAM DAILY;
     Route: 065
  3. ENTACAPONE [Suspect]
     Active Substance: ENTACAPONE
     Dosage: 1000 MILLIGRAM DAILY;
     Route: 065
  4. ENTACAPONE [Suspect]
     Active Substance: ENTACAPONE
     Route: 065
  5. CARBIDOPA\LEVODOPA [Suspect]
     Active Substance: CARBIDOPA\LEVODOPA
     Indication: Parkinson^s disease
     Dosage: 1000250 MILLIGRAM DAILY;
     Route: 065
  6. CARBIDOPA\LEVODOPA [Suspect]
     Active Substance: CARBIDOPA\LEVODOPA
     Indication: Product used for unknown indication
     Route: 065
  7. CARBIDOPA\LEVODOPA [Suspect]
     Active Substance: CARBIDOPA\LEVODOPA
     Route: 065
  8. NABILONE [Suspect]
     Active Substance: NABILONE
     Indication: Parkinson^s disease
     Route: 048
  9. NABILONE [Suspect]
     Active Substance: NABILONE
     Indication: Product used for unknown indication
     Route: 065
  10. NABILONE [Suspect]
     Active Substance: NABILONE
     Route: 048
  11. NABILONE [Suspect]
     Active Substance: NABILONE
     Route: 048
  12. PRAMIPEXOLE [Suspect]
     Active Substance: PRAMIPEXOLE
     Indication: Parkinson^s disease
     Dosage: 4.5 MILLIGRAM DAILY;
     Route: 065
  13. PRAMIPEXOLE [Suspect]
     Active Substance: PRAMIPEXOLE
     Indication: Product used for unknown indication
     Dosage: 1.5 MILLIGRAM DAILY;
     Route: 065
  14. PRAMIPEXOLE [Suspect]
     Active Substance: PRAMIPEXOLE
     Dosage: .75 MILLIGRAM DAILY;
     Route: 065
  15. PRAMIPEXOLE [Suspect]
     Active Substance: PRAMIPEXOLE
     Dosage: 4.5 MILLIGRAM DAILY;
     Route: 065
  16. PRAMIPEXOLE [Suspect]
     Active Substance: PRAMIPEXOLE
     Dosage: 4.5 MILLIGRAM DAILY;
     Route: 065
  17. QUETIAPINE FUMARATE [Suspect]
     Active Substance: QUETIAPINE FUMARATE
     Indication: Psychotic disorder
     Dosage: 12.5 MILLIGRAM DAILY;
     Route: 065
  18. QUETIAPINE FUMARATE [Suspect]
     Active Substance: QUETIAPINE FUMARATE
     Indication: Product used for unknown indication
  19. AMANTADINE [Suspect]
     Active Substance: AMANTADINE
     Indication: Psychotic disorder
     Dosage: 300 MILLIGRAM DAILY;
     Route: 065
  20. AMANTADINE [Suspect]
     Active Substance: AMANTADINE
     Indication: Parkinson^s disease
     Dosage: 300 MILLIGRAM DAILY;
     Route: 065
  21. AMANTADINE [Suspect]
     Active Substance: AMANTADINE
     Indication: Product used for unknown indication
     Dosage: 300 MILLIGRAM DAILY;
     Route: 065
  22. AMANTADINE [Suspect]
     Active Substance: AMANTADINE
     Dosage: 300 MILLIGRAM DAILY;
     Route: 065
  23. CLOZAPINE [Suspect]
     Active Substance: CLOZAPINE
     Indication: Psychotic disorder
     Dosage: 37.5 MILLIGRAM DAILY;
     Route: 065
  24. CLOZAPINE [Suspect]
     Active Substance: CLOZAPINE
     Indication: Parkinson^s disease
     Route: 065
  25. CLOZAPINE [Suspect]
     Active Substance: CLOZAPINE
     Dosage: 37.5 MILLIGRAM DAILY;
     Route: 065
  26. CLOZAPINE [Suspect]
     Active Substance: CLOZAPINE
  27. CLOZAPINE [Suspect]
     Active Substance: CLOZAPINE
     Route: 065
  28. FLORINEF ACETATE [Suspect]
     Active Substance: FLUDROCORTISONE ACETATE
     Indication: Psychotic disorder
     Dosage: .1 MILLIGRAM DAILY;
     Route: 065
  29. AMANTADINE [Concomitant]
     Active Substance: AMANTADINE
     Indication: Parkinson^s disease
  30. CARBIDOPA\LEVODOPA [Concomitant]
     Active Substance: CARBIDOPA\LEVODOPA
     Indication: Parkinson^s disease
     Route: 065
  31. CARBIDOPA\LEVODOPA [Concomitant]
     Active Substance: CARBIDOPA\LEVODOPA
     Route: 065
  32. CARBIDOPA\LEVODOPA [Concomitant]
     Active Substance: CARBIDOPA\LEVODOPA
     Route: 065
  33. ENTACAPONE [Concomitant]
     Active Substance: ENTACAPONE
     Indication: Parkinson^s disease
  34. PRAMIPEXOLE [Concomitant]
     Active Substance: PRAMIPEXOLE
     Indication: Parkinson^s disease
  35. PRAMIPEXOLE [Concomitant]
     Active Substance: PRAMIPEXOLE

REACTIONS (8)
  - Therapeutic product effect incomplete [Recovering/Resolving]
  - Dystonia [Recovering/Resolving]
  - Orthostatic hypotension [Recovering/Resolving]
  - Psychotic disorder [Recovering/Resolving]
  - Therapeutic response shortened [Recovering/Resolving]
  - Parkinson^s disease psychosis [Recovering/Resolving]
  - Acute psychosis [Recovered/Resolved]
  - Dyskinesia [Recovering/Resolving]
